FAERS Safety Report 7123847-X (Version None)
Quarter: 2010Q4

REPORT INFORMATION
  Report Type: 
  Country: None (occurrence: None)
  Receive Date: 20101125
  Receipt Date: 20101119
  Transmission Date: 20110411
  Serious: Yes (Hospitalization)
  Sender: FDA-Public Use
  Company Number: PHHY2010JP33635

PATIENT
  Sex: Male
  Weight: 67 kg

DRUGS (10)
  1. COMTAN [Suspect]
     Indication: PARKINSON'S DISEASE
     Dosage: 100 MG, QD
     Route: 048
     Dates: start: 20090805
  2. COMTAN [Suspect]
     Indication: DRUG EFFECT DECREASED
     Dosage: 200 MG, QD
     Route: 048
     Dates: start: 20091027
  3. COMTAN [Suspect]
     Dosage: 300 MG, QD
     Route: 048
     Dates: start: 20100405
  4. COMTAN [Suspect]
     Dosage: UNK
     Route: 048
     Dates: start: 20100422
  5. MODOPAR [Concomitant]
     Indication: PARKINSON'S DISEASE
     Dosage: 150 MG, UNK
     Route: 048
     Dates: start: 20081217
  6. SELEGILINE HCL [Concomitant]
     Indication: PARKINSON'S DISEASE
     Dosage: 2.5 MG, UNK
     Route: 048
     Dates: start: 20081217
  7. DOMIN [Concomitant]
     Indication: PARKINSON'S DISEASE
     Dosage: 0.4 MG, UNK
     Route: 048
     Dates: start: 20081217
  8. PROSTAL [Concomitant]
     Indication: BENIGN PROSTATIC HYPERPLASIA
     Dosage: 50 MG, UNK
     Route: 048
     Dates: start: 20081217
  9. TAMSULOSIN HCL [Concomitant]
     Indication: BENIGN PROSTATIC HYPERPLASIA
     Dosage: 0.1 MG, UNK
     Route: 048
     Dates: start: 20081217
  10. DOPS [Concomitant]
     Indication: PARKINSON'S DISEASE
     Dosage: 100 MG, UNK
     Route: 048
     Dates: start: 20090926

REACTIONS (4)
  - CONDITION AGGRAVATED [None]
  - GAIT DISTURBANCE [None]
  - HEPATIC FUNCTION ABNORMAL [None]
  - MALAISE [None]
